FAERS Safety Report 21783875 (Version 2)
Quarter: 2022Q4

REPORT INFORMATION
  Report Type: Spontaneous
  Country: US (occurrence: US)
  Receive Date: 20221227
  Receipt Date: 20221229
  Transmission Date: 20230113
  Serious: No
  Sender: FDA-Public Use
  Company Number: US-PFIZER INC-202201393498

PATIENT
  Age: 69 Year
  Sex: Female

DRUGS (2)
  1. FOLIC ACID [Suspect]
     Active Substance: FOLIC ACID
     Dosage: UNK
     Dates: end: 202210
  2. METHOTREXATE [Suspect]
     Active Substance: METHOTREXATE
     Dosage: UNK (1 YEAR)
     Dates: end: 202207

REACTIONS (1)
  - Alopecia [Unknown]

NARRATIVE: CASE EVENT DATE: 20220101
